FAERS Safety Report 25411101 (Version 1)
Quarter: 2025Q2

REPORT INFORMATION
  Report Type: Spontaneous
  Country: US (occurrence: US)
  Receive Date: 20250609
  Receipt Date: 20250609
  Transmission Date: 20250716
  Serious: No
  Sender: NOVITIUM PHARMA
  Company Number: US-NOVITIUMPHARMA-2025USNVP01299

PATIENT
  Age: 61 Year
  Sex: Female
  Weight: 192 kg

DRUGS (5)
  1. L-METHYLFOLATE CALCIUM [Suspect]
     Active Substance: LEVOMEFOLATE CALCIUM
     Indication: Methylenetetrahydrofolate reductase deficiency
     Route: 048
  2. CELEXA [Concomitant]
     Active Substance: CITALOPRAM HYDROBROMIDE
  3. Boostbar [Concomitant]
  4. XANAX [Concomitant]
     Active Substance: ALPRAZOLAM
     Indication: Product used for unknown indication
  5. Effectsor [Concomitant]

REACTIONS (1)
  - Drug ineffective [Unknown]
